FAERS Safety Report 9768960 (Version 1)
Quarter: 2013Q4

REPORT INFORMATION
  Report Type: Spontaneous
  Country: GB (occurrence: GB)
  Receive Date: 20131218
  Receipt Date: 20131218
  Transmission Date: 20140711
  Serious: Yes (Other)
  Sender: FDA-Public Use
  Company Number: GB-ACCORD-020708

PATIENT
  Age: 11 Year
  Sex: Female
  Weight: 22 kg

DRUGS (3)
  1. SERETIDE [Concomitant]
     Dosage: 125/25
     Route: 055
     Dates: start: 2009
  2. DESLORATADINE [Concomitant]
     Route: 048
     Dates: start: 2013
  3. MONTELUKAST [Suspect]
     Indication: ASTHMA
     Route: 048
     Dates: start: 20130711

REACTIONS (1)
  - Eczema [Recovered/Resolved]
